FAERS Safety Report 21967060 (Version 2)
Quarter: 2023Q1

REPORT INFORMATION
  Report Type: Report from Study
  Country: IT (occurrence: IT)
  Receive Date: 20230208
  Receipt Date: 20230223
  Transmission Date: 20230418
  Serious: Yes (Other)
  Sender: FDA-Public Use
  Company Number: IT-SA-SAC20230207001399

PATIENT
  Age: 69 Year
  Sex: Female

DRUGS (5)
  1. AGALSIDASE BETA [Suspect]
     Active Substance: AGALSIDASE BETA
     Indication: Fabry^s disease
     Dosage: 2 VIALS, QOW
     Route: 041
     Dates: start: 20200114
  2. EDOXABAN TOSYLATE [Concomitant]
     Active Substance: EDOXABAN TOSYLATE
     Dosage: 30 MG, QD
  3. RANEXA [RIVAROXABAN] [Concomitant]
     Dosage: 500 MG, BID
  4. MULTAQ [Concomitant]
     Active Substance: DRONEDARONE
     Dosage: 400 MG, BID
  5. POLICOL [Concomitant]
     Dosage: UNK UNK, QD

REACTIONS (1)
  - Atrial fibrillation [Recovered/Resolved]

NARRATIVE: CASE EVENT DATE: 20230202
